FAERS Safety Report 13094947 (Version 13)
Quarter: 2019Q2

REPORT INFORMATION
  Report Type: Spontaneous
  Country: US (occurrence: US)
  Receive Date: 20170106
  Receipt Date: 20190624
  Transmission Date: 20190711
  Serious: Yes (Other)
  Sender: FDA-Public Use
  Company Number: US-ACTELION-A-US2017-148016

PATIENT
  Age: 54 Year
  Sex: Male
  Weight: 71.2 kg

DRUGS (7)
  1. ADEMPAS [Concomitant]
     Active Substance: RIOCIGUAT
  2. UPTRAVI [Suspect]
     Active Substance: SELEXIPAG
     Dosage: 1000 MCG, BID
     Route: 048
  3. TRAMADOL. [Suspect]
     Active Substance: TRAMADOL
     Indication: PRODUCT USED FOR UNKNOWN INDICATION
     Route: 065
  4. MOBIC [Concomitant]
     Active Substance: MELOXICAM
     Dosage: UNK
  5. UPTRAVI [Suspect]
     Active Substance: SELEXIPAG
     Indication: PULMONARY HYPERTENSION
     Dosage: 800 MCG, BID
     Route: 048
  6. OPSUMIT [Suspect]
     Active Substance: MACITENTAN
     Indication: PULMONARY HYPERTENSION
     Dosage: 10 MG, QD
     Route: 048
     Dates: start: 20150227
  7. VALIUM [Concomitant]
     Active Substance: DIAZEPAM
     Dosage: UNK

REACTIONS (15)
  - Feeling abnormal [Unknown]
  - Genital rash [Unknown]
  - Rash [Unknown]
  - Rotator cuff repair [Recovered/Resolved]
  - Myalgia [Not Recovered/Not Resolved]
  - Intervertebral disc disorder [Unknown]
  - Shoulder operation [Unknown]
  - Arthralgia [Unknown]
  - Nausea [Not Recovered/Not Resolved]
  - Acne [Unknown]
  - Headache [Not Recovered/Not Resolved]
  - Procedural pain [Unknown]
  - Pain in jaw [Unknown]
  - Spinal pain [Unknown]
  - Back pain [Not Recovered/Not Resolved]

NARRATIVE: CASE EVENT DATE: 201709
